FAERS Safety Report 9165238 (Version 2)
Quarter: 2013Q2

REPORT INFORMATION
  Report Type: Spontaneous
  Country: US (occurrence: US)
  Receive Date: 20130315
  Receipt Date: 20130417
  Transmission Date: 20140414
  Serious: Yes (Death, Other)
  Sender: FDA-Public Use
  Company Number: US-SHIRE-ALL1-2013-01338

PATIENT
  Sex: Male
  Weight: 77.1 kg

DRUGS (2)
  1. FOSRENOL [Suspect]
     Indication: RENAL FAILURE CHRONIC
     Dosage: 1000 MG, 3X/DAY:TID
     Route: 048
     Dates: start: 2012
  2. FOSRENOL [Suspect]
     Dosage: 1000 MG, 3X/DAY:TID
     Route: 048
     Dates: start: 2012

REACTIONS (9)
  - Pneumonia aspiration [Fatal]
  - Abasia [Unknown]
  - Traumatic fracture [Recovered/Resolved]
  - Staphylococcal infection [Unknown]
  - Fall [Unknown]
  - Skin ulcer [Unknown]
  - Decreased appetite [Unknown]
  - Insomnia [Unknown]
  - Swelling [Unknown]
